FAERS Safety Report 6804378-0 (Version None)
Quarter: 2010Q2

REPORT INFORMATION
  Report Type: 
  Country: None (occurrence: None)
  Receive Date: 20100628
  Receipt Date: 20070316
  Transmission Date: 20101027
  Serious: No
  Sender: FDA-Public Use
  Company Number: US-PFIZER INC-2007021088

PATIENT
  Sex: Female
  Weight: 77.11 kg

DRUGS (3)
  1. XALATAN [Suspect]
     Indication: INTRAOCULAR PRESSURE INCREASED
     Dosage: 1 DROP INTO EACH EYE
     Dates: start: 20060101, end: 20070101
  2. OPHTHALMOLOGICALS [Concomitant]
     Indication: INTRAOCULAR PRESSURE INCREASED
     Dates: start: 20020101
  3. CALAN [Concomitant]
     Indication: HYPERTENSION
     Dates: start: 20040101

REACTIONS (3)
  - BURNING SENSATION [None]
  - DERMATITIS CONTACT [None]
  - LACRIMATION INCREASED [None]
